FAERS Safety Report 22269265 (Version 3)
Quarter: 2023Q2

REPORT INFORMATION
  Report Type: Report from Study
  Country: DE (occurrence: None)
  Receive Date: 20230501
  Receipt Date: 20230602
  Transmission Date: 20230722
  Serious: Yes (Hospitalization)
  Sender: FDA-Public Use
  Company Number: DE-ROCHE-3331949

PATIENT
  Age: 69 Year
  Sex: Male

DRUGS (2)
  1. OBINUTUZUMAB [Suspect]
     Active Substance: OBINUTUZUMAB
     Indication: Marginal zone lymphoma
     Dosage: CYCLICAL, LAST ADMINISTRATION PRIOR TO REPORTED EVENT WAS ON 08/MAR/2023
     Route: 042
     Dates: start: 20201126
  2. NOVORAPID [Concomitant]
     Active Substance: INSULIN ASPART
     Dates: start: 202303

REACTIONS (6)
  - Pneumonia [Not Recovered/Not Resolved]
  - COVID-19 pneumonia [Recovered/Resolved]
  - Syncope [Recovered/Resolved]
  - Pulmonary embolism [Recovered/Resolved]
  - Deep vein thrombosis [Recovering/Resolving]
  - Pneumonia [Recovered/Resolved]

NARRATIVE: CASE EVENT DATE: 20230301
